FAERS Safety Report 8791421 (Version 1)
Quarter: 2012Q4

REPORT INFORMATION
  Report Type: Spontaneous
  Country: DK (occurrence: None)
  Receive Date: 20120912
  Receipt Date: 20120912
  Transmission Date: 20130627
  Serious: Yes (Other)
  Sender: FDA-Public Use
  Company Number: 2012MA010742

PATIENT
  Sex: Female

DRUGS (1)
  1. FINASTERIDE [Suspect]
     Indication: DRUG USE FOR UNKNOWN INDICATION

REACTIONS (3)
  - Pregnancy [None]
  - Exposure during pregnancy [None]
  - Exposure via partner [None]
